FAERS Safety Report 5596612-2 (Version None)
Quarter: 2008Q1

REPORT INFORMATION
  Report Type: 
  Country: None (occurrence: None)
  Receive Date: 20080118
  Receipt Date: 20080108
  Transmission Date: 20080703
  Serious: Yes (Other)
  Sender: FDA-Public Use
  Company Number: FR-PFIZER INC-2008002494

PATIENT
  Sex: Female

DRUGS (4)
  1. LYRICA [Suspect]
     Indication: PAIN
     Route: 048
  2. LESCOL [Concomitant]
  3. ZOLPIDEM TARTRATE [Concomitant]
  4. LANSOPRAZOLE [Concomitant]

REACTIONS (1)
  - ONYCHOLYSIS [None]
